FAERS Safety Report 7272506-1 (Version None)
Quarter: 2011Q1

REPORT INFORMATION
  Report Type: 
  Country: None (occurrence: None)
  Receive Date: 20110203
  Receipt Date: 20101202
  Transmission Date: 20110831
  Serious: Yes (Hospitalization)
  Sender: FDA-Public Use
  Company Number: FR-BAYER-201047830GPV

PATIENT
  Sex: Male
  Weight: 70 kg

DRUGS (8)
  1. STAGID [Concomitant]
     Dosage: 2100 MG (DAILY DOSE), ,
  2. TAHOR [Concomitant]
     Dosage: 10 MG (DAILY DOSE), ,
  3. COTAREG [Concomitant]
     Dosage: 160 MG (DAILY DOSE), ,
  4. TEMERIT [Concomitant]
     Dosage: 5 MG (DAILY DOSE), ,
  5. NEXAVAR [Suspect]
     Dosage: 400 MG, QD
     Route: 048
     Dates: start: 20100317, end: 20100402
  6. NOCTRAN 10 [Concomitant]
     Dates: end: 20100218
  7. SERTRALINE [Concomitant]
     Dosage: 1 CP
     Dates: start: 20100302
  8. NEXAVAR [Suspect]
     Indication: HEPATIC NEOPLASM MALIGNANT
     Dosage: 800 MG, QD
     Route: 048
     Dates: start: 20100209, end: 20100217

REACTIONS (1)
  - HEPATIC ENCEPHALOPATHY [None]
